FAERS Safety Report 14595971 (Version 2)
Quarter: 2018Q2

REPORT INFORMATION
  Report Type: Spontaneous
  Country: FR (occurrence: FR)
  Receive Date: 20180303
  Receipt Date: 20180424
  Transmission Date: 20180711
  Serious: Yes (Hospitalization, Other)
  Sender: FDA-Public Use
  Company Number: FR-AUROBINDO-AUR-APL-2018-010549

PATIENT
  Age: 23 Year
  Sex: Male

DRUGS (7)
  1. ABILIFY MAINTENA [Suspect]
     Active Substance: ARIPIPRAZOLE
     Indication: BIPOLAR DISORDER
     Dosage: 400 MG, UNK
     Route: 030
     Dates: start: 20150225, end: 20150225
  2. LITHIUM. [Concomitant]
     Active Substance: LITHIUM
     Dosage: UNK ()
     Route: 065
  3. ARIPIPRAZOL ORODISPERSIBLE TABLETS [Suspect]
     Active Substance: ARIPIPRAZOLE
     Dosage: 40 MG, QD
     Route: 048
     Dates: start: 20150213
  4. ARIPIPRAZOL ORODISPERSIBLE TABLETS [Suspect]
     Active Substance: ARIPIPRAZOLE
     Dosage: 40 MG, UNK
     Route: 048
     Dates: start: 20150227, end: 20150309
  5. DEPAKINE                           /00228501/ [Concomitant]
     Active Substance: VALPROIC ACID
     Indication: PRODUCT USED FOR UNKNOWN INDICATION
     Dosage: UNK ()
     Route: 065
  6. ARIPIPRAZOL ORODISPERSIBLE TABLETS [Suspect]
     Active Substance: ARIPIPRAZOLE
     Indication: BIPOLAR DISORDER
     Dosage: 20 MG, QD
     Route: 048
     Dates: start: 20150225
  7. LITHIUM. [Concomitant]
     Active Substance: LITHIUM
     Indication: PRODUCT USED FOR UNKNOWN INDICATION
     Dosage: UNK ()
     Route: 065

REACTIONS (12)
  - Psychiatric decompensation [Recovering/Resolving]
  - Dysarthria [Recovering/Resolving]
  - Psychomotor hyperactivity [Recovering/Resolving]
  - Off label use [Unknown]
  - Dermatitis bullous [Recovered/Resolved]
  - Euphoric mood [Recovering/Resolving]
  - Disorientation [Recovering/Resolving]
  - Oedema peripheral [Recovered/Resolved]
  - Mania [Recovering/Resolving]
  - Urticaria [Unknown]
  - Aggression [Recovering/Resolving]
  - Pruritus [Recovered/Resolved]

NARRATIVE: CASE EVENT DATE: 20150225
